FAERS Safety Report 4299413-0 (Version None)
Quarter: 2004Q1

REPORT INFORMATION
  Report Type: 
  Country: None (occurrence: None)
  Receive Date: 20040219
  Receipt Date: 20030707
  Transmission Date: 20041129
  Serious: Yes (Life-Threatening, Hospitalization, Disabling)
  Sender: FDA-Public Use
  Company Number: WAES 0307USA00874

PATIENT
  Age: 77 Year
  Sex: Male

DRUGS (1)
  1. ZOCOR [Suspect]
     Indication: HYPERCHOLESTEROLAEMIA
     Route: 048
     Dates: start: 20000101, end: 20030101

REACTIONS (10)
  - ABASIA [None]
  - CARDIAC FAILURE CONGESTIVE [None]
  - CHROMATURIA [None]
  - DECREASED APPETITE [None]
  - GASTRIC ULCER [None]
  - KIDNEY ENLARGEMENT [None]
  - RENAL DISORDER [None]
  - RHABDOMYOLYSIS [None]
  - SKIN DISORDER [None]
  - WEIGHT DECREASED [None]
